FAERS Safety Report 4632706-3 (Version None)
Quarter: 2005Q2

REPORT INFORMATION
  Report Type: 
  Country: None (occurrence: None)
  Receive Date: 20050412
  Receipt Date: 20050331
  Transmission Date: 20051028
  Serious: Yes (Other)
  Sender: FDA-Public Use
  Company Number: JP-JNJFOC-20041106199

PATIENT
  Sex: Female
  Weight: 56 kg

DRUGS (18)
  1. INFLIXIMAB [Suspect]
     Route: 042
  2. INFLIXIMAB [Suspect]
     Indication: RHEUMATOID ARTHRITIS
     Route: 042
  3. RHEUMATREX [Suspect]
     Route: 049
  4. RHEUMATREX [Suspect]
     Indication: RHEUMATOID ARTHRITIS
     Route: 049
  5. PREDNISOLONE [Suspect]
     Indication: RHEUMATOID ARTHRITIS
     Route: 049
  6. AZULFIDINE [Concomitant]
     Indication: RHEUMATOID ARTHRITIS
     Route: 049
  7. MOVER [Concomitant]
     Indication: RHEUMATOID ARTHRITIS
     Route: 049
  8. ISONIAZID [Concomitant]
     Route: 049
  9. PYDOXAL [Concomitant]
     Route: 049
  10. ROCALTROL [Concomitant]
     Route: 049
  11. JUVELA-N [Concomitant]
     Route: 049
  12. MUCOSTA [Concomitant]
     Route: 049
  13. CANDESARTAN [Concomitant]
  14. ITRACONAZOLE [Concomitant]
  15. PRAVASTATIN [Concomitant]
  16. SULFASALAZINE [Concomitant]
  17. TETUCUR [Concomitant]
  18. THYRADIN S [Concomitant]

REACTIONS (2)
  - DRUG INEFFECTIVE [None]
  - PNEUMONITIS CRYPTOCOCCAL [None]
